FAERS Safety Report 24579438 (Version 1)
Quarter: 2024Q4

REPORT INFORMATION
  Report Type: Spontaneous
  Country: JP (occurrence: JP)
  Receive Date: 20241105
  Receipt Date: 20241105
  Transmission Date: 20250114
  Serious: Yes (Other)
  Sender: NOVARTIS
  Company Number: JP-002147023-NVSJ2022JP092890

PATIENT
  Age: 67 Year
  Sex: Male

DRUGS (2)
  1. BEOVU [Suspect]
     Active Substance: BROLUCIZUMAB-DBLL
     Indication: Polypoidal choroidal vasculopathy
     Dosage: 6 MG
     Route: 031
  2. BEOVU [Suspect]
     Active Substance: BROLUCIZUMAB-DBLL
     Indication: Neovascular age-related macular degeneration

REACTIONS (6)
  - Vitritis [Recovering/Resolving]
  - Retinal vasculitis [Recovering/Resolving]
  - Polypoidal choroidal vasculopathy [Unknown]
  - Disease recurrence [Unknown]
  - Iritis [Recovering/Resolving]
  - Conjunctival hyperaemia [Recovering/Resolving]
